FAERS Safety Report 4997030-8 (Version None)
Quarter: 2006Q2

REPORT INFORMATION
  Report Type: 
  Country: None (occurrence: None)
  Receive Date: 20060509
  Receipt Date: 20060421
  Transmission Date: 20061013
  Serious: Yes (Hospitalization)
  Sender: FDA-Public Use
  Company Number: FR-SANOFI-SYNTHELABO-F01200601098

PATIENT
  Sex: Male

DRUGS (5)
  1. OXALIPLATIN [Suspect]
     Indication: COLORECTAL CANCER
     Route: 042
     Dates: start: 20060414, end: 20060414
  2. ERBITUX [Suspect]
     Dosage: 400 MG/M2 FIRST WEEK THEN 250 MG/M2 EACH WEEK
     Route: 042
     Dates: start: 20060206, end: 20060413
  3. GEMCITABINE [Suspect]
     Indication: PANCREATIC CARCINOMA
     Route: 042
     Dates: start: 20060413, end: 20060413
  4. DOXICYCLINE [Concomitant]
     Indication: ACNE
     Dosage: UNK
     Route: 065
     Dates: start: 20060228
  5. AMIODARONE HCL [Concomitant]
     Indication: ARRHYTHMIA
     Dosage: UNK
     Route: 065

REACTIONS (3)
  - HEPATIC ENCEPHALOPATHY [None]
  - KETOACIDOSIS [None]
  - PANCYTOPENIA [None]
